FAERS Safety Report 8009166-8 (Version None)
Quarter: 2011Q4

REPORT INFORMATION
  Report Type: 
  Country: None (occurrence: None)
  Receive Date: 20111227
  Receipt Date: 20111215
  Transmission Date: 20120403
  Serious: Yes (Other)
  Sender: FDA-Public Use
  Company Number: BR-ASTRAZENECA-2011SE60982

PATIENT
  Age: 26 Year
  Sex: Female

DRUGS (2)
  1. NEXIUM [Suspect]
     Route: 048
     Dates: start: 20110101, end: 20110101
  2. NEXIUM [Suspect]
     Route: 048
     Dates: start: 20111001, end: 20110101

REACTIONS (1)
  - GASTRITIS [None]
